FAERS Safety Report 8577580-8 (Version None)
Quarter: 2012Q3

REPORT INFORMATION
  Report Type: 
  Country: None (occurrence: None)
  Receive Date: 20120807
  Receipt Date: 20120806
  Transmission Date: 20120928
  Serious: Yes (Hospitalization, Other)
  Sender: FDA-Public Use
  Company Number: US-009507513-1204USA01365

PATIENT

DRUGS (3)
  1. ACTONEL [Suspect]
     Indication: OSTEOPOROSIS
     Dosage: 35 MG, UNK
     Dates: start: 20020101, end: 20030101
  2. PREMPRO [Concomitant]
     Dates: start: 19970101
  3. FOSAMAX [Suspect]
     Indication: OSTEOPOROSIS
     Dosage: 70 MG, UNK
     Route: 048
     Dates: start: 20030701, end: 20100301

REACTIONS (12)
  - MUSCLE DISORDER [None]
  - GASTROOESOPHAGEAL REFLUX DISEASE [None]
  - EXCORIATION [None]
  - FEMUR FRACTURE [None]
  - ARTHROPATHY [None]
  - PAIN IN EXTREMITY [None]
  - SOFT TISSUE MASS [None]
  - HYPERTENSION [None]
  - RADICULOPATHY [None]
  - BACK PAIN [None]
  - HIATUS HERNIA [None]
  - PEPTIC ULCER [None]
